FAERS Safety Report 7796111-3 (Version None)
Quarter: 2011Q4

REPORT INFORMATION
  Report Type: 
  Country: None (occurrence: None)
  Receive Date: 20111004
  Receipt Date: 20110928
  Transmission Date: 20120403
  Serious: Yes (Death, Hospitalization)
  Sender: FDA-Public Use
  Company Number: US-CELGENEUS-163-21880-11091668

PATIENT
  Sex: Male

DRUGS (10)
  1. MIRALAX [Concomitant]
     Route: 065
  2. TYLENOL-500 [Concomitant]
     Route: 065
  3. CALCIUM GLUCONATE [Concomitant]
     Route: 065
  4. REVLIMID [Suspect]
     Dosage: 25 MILLIGRAM
     Route: 048
     Dates: start: 20110701, end: 20110901
  5. REVLIMID [Suspect]
     Dosage: 25 MILLIGRAM
     Route: 048
     Dates: start: 20110408, end: 20110101
  6. OXYCODONE HCL [Concomitant]
     Route: 065
  7. AZOPT [Concomitant]
     Route: 065
  8. DEXAMETHASONE [Concomitant]
     Route: 065
  9. VITAMIN D [Concomitant]
     Route: 065
  10. TRAVATAN [Concomitant]
     Route: 065

REACTIONS (3)
  - CARDIAC FAILURE CONGESTIVE [None]
  - DEATH [None]
  - FALL [None]
